FAERS Safety Report 4681153-7 (Version None)
Quarter: 2005Q2

REPORT INFORMATION
  Report Type: 
  Country: None (occurrence: None)
  Receive Date: 20050602
  Receipt Date: 20041103
  Transmission Date: 20051028
  Serious: Yes (Hospitalization)
  Sender: FDA-Public Use
  Company Number: 2004S1003284

PATIENT
  Age: 63 Year
  Sex: Male
  Weight: 108.8633 kg

DRUGS (12)
  1. CLONAZEPAM [Suspect]
     Indication: PANIC ATTACK
     Dosage: MG; HS; PO
     Route: 048
     Dates: start: 20040930, end: 20041012
  2. CLONAZEPAM [Suspect]
     Indication: PANIC ATTACK
     Dosage: MG; HS; PO
     Route: 048
     Dates: start: 20040930, end: 20041012
  3. . [Concomitant]
  4. LISINOPRIL [Concomitant]
  5. FENTANYL [Concomitant]
  6. FLUOXETINE [Concomitant]
  7. INSULIN [Concomitant]
  8. ISOPHANE [Concomitant]
  9. INSULIN [Concomitant]
  10. DOCUSATE SODIUM/ SENNA [Concomitant]
  11. ALPRAZOLAM [Concomitant]
  12. TEMAZEPAM [Concomitant]

REACTIONS (13)
  - ABDOMINAL DISTENSION [None]
  - ABDOMINAL PAIN UPPER [None]
  - ASCITES [None]
  - CONSTIPATION [None]
  - DIARRHOEA [None]
  - DYSPEPSIA [None]
  - HEADACHE [None]
  - HEPATOCELLULAR DAMAGE [None]
  - HYPOAESTHESIA [None]
  - NIGHTMARE [None]
  - PAINFUL DEFAECATION [None]
  - RASH [None]
  - URINARY TRACT DISORDER [None]
